FAERS Safety Report 4993001-6 (Version None)
Quarter: 2006Q2

REPORT INFORMATION
  Report Type: 
  Country: None (occurrence: None)
  Receive Date: 20060504
  Receipt Date: 20060406
  Transmission Date: 20061013
  Serious: Yes (Hospitalization)
  Sender: FDA-Public Use
  Company Number: US-MERCK-0604USA00939

PATIENT
  Age: 47 Year
  Sex: Female
  Weight: 63 kg

DRUGS (6)
  1. VIOXX [Suspect]
     Indication: SHOULDER PAIN
     Route: 048
     Dates: start: 20011201, end: 20041009
  2. PLAVIX [Concomitant]
     Route: 065
  3. CRESTOR [Concomitant]
     Route: 065
  4. COREG [Concomitant]
     Route: 065
  5. ASPIRIN [Concomitant]
     Route: 065
  6. COUGH, COLD, AND FLU THERAPIES (UNSPECIFIED) [Concomitant]
     Route: 065

REACTIONS (2)
  - BREAST ABSCESS [None]
  - MYOCARDIAL INFARCTION [None]
